FAERS Safety Report 23985999 (Version 1)
Quarter: 2024Q2

REPORT INFORMATION
  Report Type: Spontaneous
  Country: US (occurrence: US)
  Receive Date: 20240618
  Receipt Date: 20240618
  Transmission Date: 20240715
  Serious: No
  Sender: FDA-Public Use
  Company Number: US-MYLANLABS-2024M1052607

PATIENT
  Age: 62 Year
  Sex: Female
  Weight: 68.04 kg

DRUGS (1)
  1. ESTRADIOL [Suspect]
     Active Substance: ESTRADIOL
     Indication: Vulvovaginal burning sensation
     Dosage: UNK, QD (0.5 G TO 1 G ONCE A DAY AT NIGHT)
     Route: 067
     Dates: start: 20240604

REACTIONS (4)
  - Condition aggravated [Unknown]
  - Diarrhoea [Unknown]
  - Vulvovaginal burning sensation [Unknown]
  - Nausea [Unknown]

NARRATIVE: CASE EVENT DATE: 20240604
